FAERS Safety Report 12577206 (Version 1)
Quarter: 2016Q3

REPORT INFORMATION
  Report Type: Spontaneous
  Country: US (occurrence: US)
  Receive Date: 20160720
  Receipt Date: 20160720
  Transmission Date: 20161109
  Serious: No
  Sender: FDA-Public Use
  Company Number: US-PERRIGO-15US010348

PATIENT
  Age: 26 Year
  Sex: Female
  Weight: 59.86 kg

DRUGS (1)
  1. MICONAZOLE 1 [Suspect]
     Active Substance: MICONAZOLE NITRATE
     Indication: VULVOVAGINAL MYCOTIC INFECTION
     Dosage: 1200 MG, SINGLE
     Route: 067
     Dates: start: 20150925, end: 20150925

REACTIONS (5)
  - Hypersensitivity [Recovered/Resolved]
  - Drug hypersensitivity [None]
  - Vulvovaginal swelling [Recovered/Resolved]
  - Vulvovaginal discomfort [Recovered/Resolved]
  - Urticaria [Recovered/Resolved]

NARRATIVE: CASE EVENT DATE: 20150926
